FAERS Safety Report 10442739 (Version 10)
Quarter: 2015Q3

REPORT INFORMATION
  Report Type: Report from Study
  Country: TW (occurrence: TW)
  Receive Date: 20140909
  Receipt Date: 20150716
  Transmission Date: 20151125
  Serious: Yes (Death, Hospitalization)
  Sender: FDA-Public Use
  Company Number: TW-009507513-1406TWN012874

PATIENT
  Age: 54 Year
  Sex: Male
  Weight: 57 kg

DRUGS (13)
  1. PEMBROLIZUMAB. [Suspect]
     Active Substance: PEMBROLIZUMAB
     Dosage: 10MG/KG, EVERY 2 WEEKS
     Route: 042
     Dates: start: 20140617, end: 20140617
  2. PEMBROLIZUMAB. [Suspect]
     Active Substance: PEMBROLIZUMAB
     Indication: NEOPLASM
     Dosage: 10MG/KG, EVERY 2 WEEKS
     Route: 042
     Dates: start: 20140520, end: 20140603
  3. ULTRACET [Concomitant]
     Active Substance: ACETAMINOPHEN\TRAMADOL HYDROCHLORIDE
     Indication: PAIN IN EXTREMITY
     Dosage: 1 TABLET, QID (TRAMADOL HCL 37.5 MG+ACETAMINOPHEN 325 MG)
     Route: 048
     Dates: start: 20140109
  4. DENOSIN (DESLORATADINE) [Concomitant]
     Indication: ADVERSE EVENT
     Dosage: 5 MG, QD
     Route: 048
     Dates: start: 20140610, end: 20140617
  5. DEX CTM [Concomitant]
     Indication: ADVERSE EVENT
     Dosage: 2 MG, QID
     Route: 048
     Dates: start: 20140617, end: 20140630
  6. SENNAPUR [Concomitant]
     Indication: PRE-EXISTING DISEASE
     Dosage: 25 MG, QD
     Route: 048
     Dates: start: 20140429
  7. MODIPANOL [Concomitant]
     Indication: PRE-EXISTING DISEASE
     Dosage: 1 MG, QD
     Route: 048
     Dates: start: 20140415
  8. METHYCOBAL [Concomitant]
     Active Substance: METHYLCOBALAMIN
     Indication: PRE-EXISTING DISEASE
     Dosage: 500 MICROGRAM, TID
     Route: 048
     Dates: start: 20140415
  9. MORPHINE [Concomitant]
     Active Substance: MORPHINE
     Indication: PAIN IN EXTREMITY
     Dosage: 20 MG, BID
     Route: 048
     Dates: start: 20140106
  10. CERETAL [Concomitant]
     Indication: PRE-EXISTING DISEASE
     Dosage: 400 MG, BID
     Route: 048
     Dates: start: 20140101
  11. MEDICON (DEXTROMETHORPHAN HYDROBROMIDE) [Concomitant]
     Active Substance: DEXTROMETHORPHAN HYDROBROMIDE
     Indication: ADVERSE EVENT
     Dosage: 15 MG, QID
     Route: 048
     Dates: start: 20140610, end: 20140617
  12. MUCOSOLVAN [Concomitant]
     Active Substance: AMBROXOL\CLENBUTEROL
     Indication: ADVERSE EVENT
     Dosage: 30 MG, QID
     Route: 048
     Dates: start: 20140610, end: 20140617
  13. MAGNESIUM OXIDE. [Concomitant]
     Active Substance: MAGNESIUM OXIDE
     Indication: PRE-EXISTING DISEASE
     Dosage: 500 MG, TID
     Route: 048
     Dates: start: 20140422

REACTIONS (2)
  - Sepsis [Fatal]
  - Pneumonitis [Recovered/Resolved]

NARRATIVE: CASE EVENT DATE: 20140620
